FAERS Safety Report 17563425 (Version 5)
Quarter: 2020Q4

REPORT INFORMATION
  Report Type: Report from Study
  Country: CA (occurrence: CA)
  Receive Date: 20200320
  Receipt Date: 20201019
  Transmission Date: 20210113
  Serious: Yes (Life-Threatening, Hospitalization, Other)
  Sender: FDA-Public Use
  Company Number: CA-BRISTOL-MYERS SQUIBB COMPANY-BMS-2020-012875

PATIENT
  Age: 58 Year
  Sex: Female
  Weight: 97 kg

DRUGS (5)
  1. SYNTHROID [Concomitant]
     Active Substance: LEVOTHYROXINE SODIUM
     Indication: PRODUCT USED FOR UNKNOWN INDICATION
     Route: 065
  2. ABATACEPT [Suspect]
     Active Substance: ABATACEPT
     Indication: RHEUMATOID ARTHRITIS
     Dosage: 750 MILLIGRAM, Q4WK
     Route: 042
     Dates: start: 20180906
  3. ABATACEPT [Suspect]
     Active Substance: ABATACEPT
     Dosage: 1000 MILLIGRAM, Q4WK
     Route: 042
     Dates: start: 20180906
  4. RAMIPRIL. [Concomitant]
     Active Substance: RAMIPRIL
     Indication: PRODUCT USED FOR UNKNOWN INDICATION
     Route: 065
  5. RISEDRONATE [Concomitant]
     Active Substance: RISEDRONATE SODIUM
     Indication: PRODUCT USED FOR UNKNOWN INDICATION
     Route: 065

REACTIONS (12)
  - Breast cancer [Unknown]
  - Pain [Unknown]
  - Gait disturbance [Unknown]
  - Pain in extremity [Unknown]
  - Arthritis [Unknown]
  - Back pain [Unknown]
  - Fatigue [Unknown]
  - Hypoaesthesia [Unknown]
  - Blood pressure systolic increased [Unknown]
  - Peripheral swelling [Unknown]
  - Off label use [Unknown]
  - Musculoskeletal stiffness [Unknown]

NARRATIVE: CASE EVENT DATE: 20201014
